FAERS Safety Report 7683679-0 (Version None)
Quarter: 2011Q3

REPORT INFORMATION
  Report Type: 
  Country: None (occurrence: None)
  Receive Date: 20110815
  Receipt Date: 20110805
  Transmission Date: 20111222
  Serious: Yes (Other)
  Sender: FDA-Public Use
  Company Number: US-ASTRAZENECA-2011SE47321

PATIENT
  Age: 81 Year
  Sex: Female

DRUGS (13)
  1. OMEPRAZOLE [Suspect]
     Indication: DYSPEPSIA
     Route: 048
  2. REMERON [Concomitant]
  3. NITROGLYCERIN [Concomitant]
  4. SIMETHICONE [Concomitant]
  5. CELEBREX [Concomitant]
  6. ZOFRAN [Concomitant]
  7. ALDACTONE [Concomitant]
  8. ZANTAC [Concomitant]
     Dosage: TWICE DAILY
  9. IRON SUPPLEMENTATION [Concomitant]
  10. LEVOTHROID [Concomitant]
  11. MULTI-VITAMIN [Concomitant]
  12. REQUIP [Concomitant]
  13. TYLENOL-500 [Concomitant]

REACTIONS (5)
  - PERIPHERAL ISCHAEMIA [None]
  - DIARRHOEA [None]
  - DYSPHAGIA [None]
  - VOMITING [None]
  - ANAEMIA [None]
